FAERS Safety Report 5321267-1 (Version None)
Quarter: 2007Q2

REPORT INFORMATION
  Report Type: 
  Country: None (occurrence: None)
  Receive Date: 20070507
  Receipt Date: 20070507
  Transmission Date: 20071010
  Serious: No
  Sender: FDA-Public Use
  Company Number: None

PATIENT
  Sex: Female
  Weight: 78.5 kg

DRUGS (2)
  1. CYCLOPHOSPHAMIDE [Suspect]
     Dosage: 1170 MG
  2. DOXORUBICIN HYDROCHLORIDE [Suspect]
     Dosage: 117 MG

REACTIONS (1)
  - NEUTROPHIL COUNT DECREASED [None]
